FAERS Safety Report 4354276-X (Version None)
Quarter: 2004Q2

REPORT INFORMATION
  Report Type: 
  Country: None (occurrence: None)
  Receive Date: 20040503
  Receipt Date: 20040416
  Transmission Date: 20050107
  Serious: Yes (Other)
  Sender: FDA-Public Use
  Company Number: J200401932

PATIENT
  Age: 56 Month
  Sex: Male

DRUGS (4)
  1. MYSLEE  - (ZOLPIDEM) - TABLET - 10MG/5MG [Suspect]
     Indication: INSOMNIA
     Dosage: 10MG/5MG
     Dates: start: 20040124, end: 20040206
  2. PAXIL (PAROXETINE HYDROCHLORIDE HYDRATE) [Concomitant]
  3. ZYRTEC (CERTIRISINE HYDROCHLORIDE) [Concomitant]
  4. GASMOTIN (MOSAPRIDE CITRATE) [Concomitant]

REACTIONS (1)
  - DEPRESSED LEVEL OF CONSCIOUSNESS [None]
